FAERS Safety Report 4877908-6 (Version None)
Quarter: 2005Q4

REPORT INFORMATION
  Report Type: 
  Country: None (occurrence: None)
  Receive Date: 20051206
  Receipt Date: 20051013
  Transmission Date: 20060501
  Serious: Yes (Other)
  Sender: FDA-Public Use
  Company Number: USA0509107711

PATIENT
  Age: 42 Year
  Sex: Female
  Weight: 87 kg

DRUGS (3)
  1. PROZAC [Suspect]
     Indication: DEPRESSION
     Dates: start: 19900101
  2. CYMBALTA [Suspect]
     Indication: DEPRESSION
     Dosage: 60 MG
     Dates: start: 20050809
  3. ADDERALL 10 [Concomitant]

REACTIONS (5)
  - DECREASED APPETITE [None]
  - HYPERTENSION [None]
  - LIBIDO DECREASED [None]
  - WEIGHT DECREASED [None]
  - WEIGHT INCREASED [None]
